FAERS Safety Report 8802782 (Version 1)
Quarter: 2012Q4

REPORT INFORMATION
  Report Type: 
  Country: JP (occurrence: JP)
  Receive Date: 20120921
  Receipt Date: 20120921
  Transmission Date: 20130627
  Serious: Yes (Other)
  Sender: FDA-Public Use
  Company Number: JP-009507513-2012SP025627

PATIENT
  Age: 37 Year
  Sex: Male
  Weight: 63 kg

DRUGS (9)
  1. RIBAVIRIN [Suspect]
     Indication: HEPATITIS C
     Dosage: 600 mg, QD
     Route: 048
     Dates: start: 20120217, end: 20120315
  2. RIBAVIRIN [Suspect]
     Dosage: 200 mg, QD
     Route: 048
     Dates: start: 20120316, end: 20120425
  3. RIBAVIRIN [Suspect]
     Dosage: 200 mg, QD
     Route: 048
     Dates: start: 20120428
  4. PEGINTRON [Suspect]
     Indication: HEPATITIS C
     Dosage: 1.5 ?g/kg, QW
     Route: 058
     Dates: start: 20120217
  5. TELAVIC [Suspect]
     Indication: HEPATITIS C
     Dosage: 2250 mg, QD
     Route: 048
     Dates: start: 20120217, end: 20120420
  6. TELAVIC [Suspect]
     Dosage: 750 mg, QD
     Route: 048
     Dates: start: 20120421, end: 20120425
  7. TELAVIC [Suspect]
     Dosage: 750 mg, QD
     Route: 048
     Dates: start: 20120507, end: 20120518
  8. ZYLORIC [Concomitant]
     Indication: BLOOD URIC ACID INCREASED
     Dosage: 100 mg, BID
     Route: 048
     Dates: start: 20120302
  9. GASTER [Concomitant]
     Indication: PROPHYLAXIS
     Dosage: 20 mg, qd
     Route: 048
     Dates: start: 20120425, end: 20120506

REACTIONS (1)
  - Rash [Recovered/Resolved]
